FAERS Safety Report 8303700-6 (Version None)
Quarter: 2012Q2

REPORT INFORMATION
  Report Type: 
  Country: None (occurrence: None)
  Receive Date: 20120423
  Receipt Date: 20120413
  Transmission Date: 20120825
  Serious: Yes (Hospitalization)
  Sender: FDA-Public Use
  Company Number: AT-AMGEN-AUTCT2012023700

PATIENT
  Age: 54 Year
  Sex: Female

DRUGS (3)
  1. DENOSUMAB [Suspect]
     Indication: BREAST CANCER
     Dosage: 60 MG, UNK
     Route: 058
     Dates: start: 20091120
  2. CAL-D-VITA [Concomitant]
  3. FEMARA [Concomitant]

REACTIONS (1)
  - BRONCHITIS [None]
